FAERS Safety Report 8009629-5 (Version None)
Quarter: 2011Q4

REPORT INFORMATION
  Report Type: 
  Country: None (occurrence: None)
  Receive Date: 20111228
  Receipt Date: 20111219
  Transmission Date: 20120403
  Serious: Yes (Hospitalization, Other)
  Sender: FDA-Public Use
  Company Number: US-BIOGENIDEC-2011BI044131

PATIENT
  Age: 64 Year
  Sex: Female
  Weight: 117 kg

DRUGS (18)
  1. ZOLOFT [Concomitant]
  2. SPIRONOLACTONE [Concomitant]
  3. CARVEDILOL [Concomitant]
  4. FOLIC ACID [Concomitant]
  5. METHOTHEXATE [Concomitant]
  6. BACLOFEN [Concomitant]
  7. BENAZEPRIL HYDROCHLORIDE [Concomitant]
  8. AVONEX [Suspect]
     Indication: MULTIPLE SCLEROSIS
     Route: 030
     Dates: start: 20001201
  9. AVONEX [Suspect]
     Route: 030
     Dates: start: 20011207
  10. PRAVASTATIN [Concomitant]
  11. MELOXICAM [Concomitant]
  12. OMEPRAZOLE [Concomitant]
  13. REQUIP [Concomitant]
  14. MULTIPLE VITAMIN/ MULTI MINERAL [Concomitant]
  15. LYRICA [Concomitant]
  16. OXYBUTYNIN [Concomitant]
  17. FUROSEMIDE [Concomitant]
  18. LEFLUNOMIDE [Concomitant]

REACTIONS (2)
  - KNEE ARTHROPLASTY [None]
  - CARDIOMYOPATHY [None]
